FAERS Safety Report 15453545 (Version 4)
Quarter: 2019Q1

REPORT INFORMATION
  Report Type: Report from Study
  Country: US (occurrence: US)
  Receive Date: 20181001
  Receipt Date: 20190116
  Transmission Date: 20190417
  Serious: Yes (Other)
  Sender: FDA-Public Use
  Company Number: US-ACTELION-A-US2018-171879

PATIENT
  Age: 37 Year
  Sex: Male
  Weight: 83.45 kg

DRUGS (3)
  1. TYVASO [Suspect]
     Active Substance: TREPROSTINIL
     Dosage: UNK
     Route: 055
  2. OPSUMIT [Suspect]
     Active Substance: MACITENTAN
     Indication: PULMONARY ARTERIAL HYPERTENSION
     Dosage: 10 MG, QD
     Route: 048
     Dates: end: 201808
  3. TYVASO [Suspect]
     Active Substance: TREPROSTINIL
     Indication: PULMONARY ARTERIAL HYPERTENSION
     Dosage: 18-54 MCG, QID
     Route: 055
     Dates: start: 20180427, end: 2018

REACTIONS (10)
  - Cough [Unknown]
  - Drug clearance decreased [Unknown]
  - Hypotension [Unknown]
  - Dyspnoea [Unknown]
  - Heart rate increased [Unknown]
  - Dizziness [Unknown]
  - Muscular weakness [Unknown]
  - Fluid retention [Unknown]
  - Haemoglobin increased [Unknown]
  - Peritoneal dialysis [Unknown]
